FAERS Safety Report 5148526-X (Version None)
Quarter: 2006Q4

REPORT INFORMATION
  Report Type: 
  Country: None (occurrence: None)
  Receive Date: 20061107
  Receipt Date: 20061023
  Transmission Date: 20070319
  Serious: Yes (Other)
  Sender: FDA-Public Use
  Company Number: 220005L06JPN

PATIENT
  Age: 13 Year
  Sex: Male
  Weight: 28.1 kg

DRUGS (2)
  1. SOMATROPIN (SOMATROPIN) [Suspect]
     Indication: BODY HEIGHT BELOW NORMAL
  2. SOMATROPIN (SOMATROPIN) [Suspect]
     Indication: GROWTH HORMONE DEFICIENCY

REACTIONS (4)
  - ANAEMIA [None]
  - CHRONIC MYELOID LEUKAEMIA [None]
  - THERAPY NON-RESPONDER [None]
  - THYROID DISORDER [None]
